FAERS Safety Report 16197995 (Version 2)
Quarter: 2019Q2

REPORT INFORMATION
  Report Type: Spontaneous
  Country: FR (occurrence: FR)
  Receive Date: 20190415
  Receipt Date: 20190424
  Transmission Date: 20190711
  Serious: Yes (Hospitalization)
  Sender: FDA-Public Use
  Company Number: FR-SA-2019SA102500

PATIENT
  Age: 86 Year
  Sex: Male
  Weight: 75 kg

DRUGS (10)
  1. ATORVASTATINE [ATORVASTATIN CALCIUM] [Concomitant]
  2. LEVOTHYROX [Concomitant]
     Active Substance: LEVOTHYROXINE
  3. IBUPROFENE [Concomitant]
     Active Substance: IBUPROFEN
  4. FLUINDIONE [Concomitant]
     Active Substance: FLUINDIONE
  5. IRBESARTAN. [Concomitant]
     Active Substance: IRBESARTAN
  6. IMMUCYST [Suspect]
     Active Substance: BACILLUS CALMETTE-GUERIN SUBSTRAIN CONNAUGHT LIVE ANTIGEN
     Indication: TRANSITIONAL CELL CARCINOMA
     Dosage: 80 MG
     Route: 043
     Dates: start: 20180830, end: 20180830
  7. PARACETAMOL [Concomitant]
     Active Substance: ACETAMINOPHEN
  8. NICORANDIL [Concomitant]
     Active Substance: NICORANDIL
  9. VERAPAMIL [Concomitant]
     Active Substance: VERAPAMIL HYDROCHLORIDE
  10. AMIODARONE [Concomitant]
     Active Substance: AMIODARONE

REACTIONS (1)
  - Intervertebral discitis [Recovering/Resolving]

NARRATIVE: CASE EVENT DATE: 20181220
